FAERS Safety Report 5907026-7 (Version None)
Quarter: 2008Q4

REPORT INFORMATION
  Report Type: 
  Country: None (occurrence: None)
  Receive Date: 20081002
  Receipt Date: 20081002
  Transmission Date: 20090506
  Serious: Yes (Other)
  Sender: FDA-Public Use
  Company Number: None

PATIENT
  Age: 59 Year
  Sex: Female
  Weight: 63.5036 kg

DRUGS (1)
  1. WALGREENS ARTIFICIAL TEARS BENZALKONIUM CHLORIDE 0.01% WALGREENS CO. [Suspect]
     Indication: KERATOCONJUNCTIVITIS SICCA
     Dosage: 2 DROPS 3 - 4 HOURS OPTHALMIC
     Route: 047
     Dates: start: 20080913, end: 20080921

REACTIONS (3)
  - FOREIGN BODY SENSATION IN EYES [None]
  - VISION BLURRED [None]
  - VISUAL ACUITY REDUCED [None]
